FAERS Safety Report 12176097 (Version 2)
Quarter: 2016Q2

REPORT INFORMATION
  Report Type: Spontaneous
  Country: IT (occurrence: IT)
  Receive Date: 20160314
  Receipt Date: 20160411
  Transmission Date: 20160815
  Serious: Yes (Hospitalization, Other)
  Sender: FDA-Public Use
  Company Number: PHHY2016IT030842

PATIENT
  Age: 39 Year
  Sex: Male

DRUGS (2)
  1. PARACETAMOL [Suspect]
     Active Substance: ACETAMINOPHEN
     Indication: SELF INJURIOUS BEHAVIOUR
     Dosage: 5000 MG, QD
     Route: 048
     Dates: start: 20150918, end: 20150918
  2. NIMESULIDE [Suspect]
     Active Substance: NIMESULIDE
     Indication: INTENTIONAL SELF-INJURY
     Dosage: 100 MG, QD
     Route: 048
     Dates: start: 20150918, end: 20150918

REACTIONS (4)
  - Dysphonia [Recovering/Resolving]
  - Psychomotor hyperactivity [Recovering/Resolving]
  - Overdose [Unknown]
  - Tachycardia [Recovering/Resolving]

NARRATIVE: CASE EVENT DATE: 20150918
